FAERS Safety Report 15122133 (Version 2)
Quarter: 2018Q3

REPORT INFORMATION
  Report Type: Spontaneous
  Country: US (occurrence: US)
  Receive Date: 20180709
  Receipt Date: 20180816
  Transmission Date: 20181010
  Serious: Yes (Hospitalization, Other)
  Sender: FDA-Public Use
  Company Number: US-PFM-2018-07398

PATIENT

DRUGS (1)
  1. HEMANGEOL [Suspect]
     Active Substance: PROPRANOLOL HYDROCHLORIDE
     Indication: INFANTILE HAEMANGIOMA
     Dosage: 0.5 ML, TID (3/DAY)
     Route: 048
     Dates: start: 20180427, end: 20180520

REACTIONS (9)
  - Inappropriate schedule of drug administration [Unknown]
  - Gastrooesophageal reflux disease [Recovered/Resolved]
  - Bradycardia [Recovered/Resolved]
  - Presyncope [Recovered/Resolved]
  - Oxygen saturation decreased [Recovered/Resolved]
  - Apnoea [Recovered/Resolved]
  - Nasopharyngitis [Recovered/Resolved]
  - Off label use [Unknown]
  - Unresponsive to stimuli [Recovered/Resolved]
